FAERS Safety Report 13408485 (Version 2)
Quarter: 2017Q4

REPORT INFORMATION
  Report Type: Spontaneous
  Country: US (occurrence: US)
  Receive Date: 20170406
  Receipt Date: 20171123
  Transmission Date: 20180320
  Serious: No
  Sender: FDA-Public Use
  Company Number: US-JNJFOC-20170223630

PATIENT
  Age: 8 Year
  Sex: Male

DRUGS (17)
  1. RISPERDAL [Suspect]
     Active Substance: RISPERIDONE
     Indication: TOURETTE^S DISORDER
     Dosage: AT VARYING DOSES OF 0.25 MG AND 0.5 MG
     Route: 048
     Dates: start: 20040721, end: 20041119
  2. RISPERDAL [Suspect]
     Active Substance: RISPERIDONE
     Indication: TOURETTE^S DISORDER
     Dosage: 0.5 MG,1 MG Q AM AND 1 MG  QHS
     Route: 048
     Dates: start: 20040820, end: 20041124
  3. RISPERDAL [Suspect]
     Active Substance: RISPERIDONE
     Indication: TIC
     Dosage: ONCE IN THE MORNING
     Route: 048
     Dates: start: 20060209, end: 20060621
  4. RISPERDAL [Suspect]
     Active Substance: RISPERIDONE
     Indication: TIC
     Dosage: 1 MG,1/2 ONCE IN THE MORNING AND 1 MG ONCE AT THE HOUR OF SLEEP
     Route: 048
     Dates: start: 20050217, end: 20050621
  5. RISPERDAL [Suspect]
     Active Substance: RISPERIDONE
     Indication: TIC
     Dosage: 1 MG AT THE HOUR OF SLEEP
     Route: 048
     Dates: start: 20060209, end: 20060621
  6. RISPERDAL [Suspect]
     Active Substance: RISPERIDONE
     Indication: TOURETTE^S DISORDER
     Dosage: 1 MG AT THE HOUR OF SLEEP
     Route: 048
     Dates: start: 20060209, end: 20060621
  7. RISPERDAL [Suspect]
     Active Substance: RISPERIDONE
     Indication: TIC
     Dosage: 0.5 MG,1 MG Q AM AND 1 MG  QHS
     Route: 048
     Dates: start: 20040820, end: 20041124
  8. RISPERDAL [Suspect]
     Active Substance: RISPERIDONE
     Indication: TOURETTE^S DISORDER
     Route: 048
     Dates: start: 20040720
  9. STRATTERA [Suspect]
     Active Substance: ATOMOXETINE HYDROCHLORIDE
     Indication: TIC
     Route: 048
  10. RISPERDAL [Suspect]
     Active Substance: RISPERIDONE
     Indication: TOURETTE^S DISORDER
     Dosage: 1 MG,1/2 ONCE IN THE MORNING AND 1 MG ONCE AT THE HOUR OF SLEEP
     Route: 048
     Dates: start: 20050217, end: 20050621
  11. RISPERDAL [Suspect]
     Active Substance: RISPERIDONE
     Indication: TOURETTE^S DISORDER
     Dosage: ONCE IN THE MORNING
     Route: 048
     Dates: start: 20060209, end: 20060621
  12. RISPERDAL [Suspect]
     Active Substance: RISPERIDONE
     Indication: TOURETTE^S DISORDER
     Dosage: 0.5 MG, 1 MG IN THE MORNING AND 1 MG AT THE HOUR OF SLEEP
     Route: 048
     Dates: start: 20041216, end: 20050213
  13. RISPERDAL [Suspect]
     Active Substance: RISPERIDONE
     Indication: TIC
     Route: 048
     Dates: start: 20040720
  14. RISPERDAL [Suspect]
     Active Substance: RISPERIDONE
     Indication: TOURETTE^S DISORDER
     Dosage: 1 MG ONCE IN THE MORNING AND 1 AND A 1/2 AT THE HOUR OF SLEEP
     Route: 048
     Dates: start: 20050825, end: 20051220
  15. RISPERDAL [Suspect]
     Active Substance: RISPERIDONE
     Indication: TIC
     Dosage: 0.5 MG, 1 MG IN THE MORNING AND 1 MG AT THE HOUR OF SLEEP
     Route: 048
     Dates: start: 20041216, end: 20050213
  16. RISPERDAL [Suspect]
     Active Substance: RISPERIDONE
     Indication: TIC
     Dosage: AT VARYING DOSES OF 0.25 MG AND 0.5 MG
     Route: 048
     Dates: start: 20040721, end: 20041119
  17. RISPERDAL [Suspect]
     Active Substance: RISPERIDONE
     Indication: TIC
     Dosage: 1 MG ONCE IN THE MORNING AND 1 AND A 1/2 AT THE HOUR OF SLEEP
     Route: 048
     Dates: start: 20050825, end: 20051220

REACTIONS (7)
  - Emotional disorder [Unknown]
  - Drug ineffective for unapproved indication [Unknown]
  - Product use in unapproved indication [Unknown]
  - Off label use [Unknown]
  - Hypersomnia [Unknown]
  - Gynaecomastia [Unknown]
  - Weight increased [Unknown]

NARRATIVE: CASE EVENT DATE: 20040721
